APPROVED DRUG PRODUCT: CLONIDINE HYDROCHLORIDE AND CHLORTHALIDONE
Active Ingredient: CHLORTHALIDONE; CLONIDINE HYDROCHLORIDE
Strength: 15MG;0.1MG
Dosage Form/Route: TABLET;ORAL
Application: A071179 | Product #001
Applicant: PAR PHARMACEUTICAL INC
Approved: Dec 16, 1987 | RLD: No | RS: No | Type: DISCN